FAERS Safety Report 14845034 (Version 7)
Quarter: 2018Q4

REPORT INFORMATION
  Report Type: Report from Study
  Country: CA (occurrence: CA)
  Receive Date: 20180504
  Receipt Date: 20181114
  Transmission Date: 20190204
  Serious: Yes (Other)
  Sender: FDA-Public Use
  Company Number: CA-UCBSA-2018008018

PATIENT
  Age: 40 Year
  Sex: Female
  Weight: 82 kg

DRUGS (3)
  1. CERTOLIZUMAB PEGOL AUTOCLICKS [Suspect]
     Active Substance: CERTOLIZUMAB PEGOL
     Dosage: 200 MG, EV 2 WEEKS(QOW)
     Route: 058
  2. CERTOLIZUMAB PEGOL AUTOCLICKS [Suspect]
     Active Substance: CERTOLIZUMAB PEGOL
     Indication: ANKYLOSING SPONDYLITIS
     Dosage: 400 MG, EV 2 WEEKS(QOW) FOR 3 DOSES
     Route: 058
     Dates: start: 20180130
  3. AMOXICILLIN. [Concomitant]
     Active Substance: AMOXICILLIN
     Indication: PHARYNGITIS STREPTOCOCCAL
     Dosage: 3 PILLS A DAY FOR 10 DAYS

REACTIONS (6)
  - Headache [Unknown]
  - Drug effect decreased [Unknown]
  - Respiratory disorder [Unknown]
  - Fatigue [Unknown]
  - Dizziness [Unknown]
  - Pharyngitis streptococcal [Recovered/Resolved]

NARRATIVE: CASE EVENT DATE: 201805
